FAERS Safety Report 8269422-5 (Version None)
Quarter: 2012Q2

REPORT INFORMATION
  Report Type: 
  Country: None (occurrence: None)
  Receive Date: 20120409
  Receipt Date: 20120228
  Transmission Date: 20120825
  Serious: No
  Sender: FDA-Public Use
  Company Number: US-ASTRAZENECA-2012SE13986

PATIENT
  Sex: Female

DRUGS (4)
  1. BRILINTA [Suspect]
     Route: 048
  2. ACE INHIBITOR [Concomitant]
  3. BETA-BLOCKERS [Concomitant]
  4. STATIN [Concomitant]

REACTIONS (1)
  - THROMBOCYTOPENIA [None]
